FAERS Safety Report 17700328 (Version 4)
Quarter: 2020Q3

REPORT INFORMATION
  Report Type: Spontaneous
  Country: US (occurrence: US)
  Receive Date: 20200423
  Receipt Date: 20200901
  Transmission Date: 20201102
  Serious: Yes (Hospitalization)
  Sender: FDA-Public Use
  Company Number: US-009507513-2004USA006234

PATIENT
  Age: 29 Year
  Sex: Female

DRUGS (14)
  1. LAMOTRIGINE. [Concomitant]
     Active Substance: LAMOTRIGINE
     Dosage: UNK
     Route: 048
  2. POTASSIUM CHLORIDE. [Concomitant]
     Active Substance: POTASSIUM CHLORIDE
     Dosage: UNK
  3. ELIQUIS [Concomitant]
     Active Substance: APIXABAN
     Dosage: UNK
     Route: 048
  4. ZOFRAN [Concomitant]
     Active Substance: ONDANSETRON HYDROCHLORIDE
     Dosage: UNK
     Route: 048
  5. NORETHINDRONE. [Concomitant]
     Active Substance: NORETHINDRONE
     Dosage: UNK
     Route: 048
  6. TRAMADOL HYDROCHLORIDE. [Concomitant]
     Active Substance: TRAMADOL HYDROCHLORIDE
     Dosage: UNK
     Route: 048
  7. PEPCID [Concomitant]
     Active Substance: FAMOTIDINE
     Dosage: UNK
     Route: 048
  8. LASIX [Concomitant]
     Active Substance: FUROSEMIDE
     Dosage: UNK
     Route: 048
  9. OPSUMIT [Concomitant]
     Active Substance: MACITENTAN
     Dosage: UNK
  10. NEXPLANON [Suspect]
     Active Substance: ETONOGESTREL
     Indication: CONTRACEPTION
     Dosage: 1 IMPLANT, ONE TIME
     Route: 059
  11. PROVERA [Concomitant]
     Active Substance: MEDROXYPROGESTERONE ACETATE
     Dosage: UNK
     Route: 048
  12. ALDACTONE [Concomitant]
     Active Substance: SPIRONOLACTONE
     Dosage: UNK
     Route: 048
  13. VELETRI [Suspect]
     Active Substance: EPOPROSTENOL
     Dosage: 21 NANOGRAM PER KILOGRAM PER MINUTE
     Dates: start: 202004
  14. FIORICET [Concomitant]
     Active Substance: ACETAMINOPHEN\BUTALBITAL\CAFFEINE
     Dosage: STRENGTH: 50?300?40 (UNITS NOT PROVIDED)

REACTIONS (12)
  - Pain in jaw [Unknown]
  - Headache [Unknown]
  - Implant site pruritus [Not Recovered/Not Resolved]
  - Chest pain [Unknown]
  - Pain [Unknown]
  - Nausea [Unknown]
  - Abdominal pain [Unknown]
  - Implant site discharge [Not Recovered/Not Resolved]
  - Adverse event [Unknown]
  - Cough [Unknown]
  - Fatigue [Unknown]
  - Constipation [Unknown]

NARRATIVE: CASE EVENT DATE: 2020
